FAERS Safety Report 8446597-6 (Version None)
Quarter: 2012Q2

REPORT INFORMATION
  Report Type: 
  Country: None (occurrence: None)
  Receive Date: 20120619
  Receipt Date: 20120612
  Transmission Date: 20120825
  Serious: No
  Sender: FDA-Public Use
  Company Number: US-B.I. PHARMACEUTICALS,INC./RIDGEFIELD-2012-BP-13574BP

PATIENT
  Sex: Female

DRUGS (5)
  1. PRADAXA [Suspect]
     Indication: CEREBROVASCULAR ACCIDENT PROPHYLAXIS
     Dosage: 300 MG
     Route: 048
     Dates: start: 20120201
  2. JANUVIA [Concomitant]
     Indication: BLOOD GLUCOSE ABNORMAL
  3. LEVOTHYROXINE SODIUM [Concomitant]
     Indication: THYROID DISORDER
  4. LORATADINE [Concomitant]
     Indication: HYPERSENSITIVITY
  5. ATENOLOL [Concomitant]
     Indication: HYPERTENSION

REACTIONS (2)
  - HYPOAESTHESIA [None]
  - LIMB DISCOMFORT [None]
